FAERS Safety Report 9753141 (Version 2)
Quarter: 2015Q3

REPORT INFORMATION
  Report Type: Spontaneous
  Country: US (occurrence: US)
  Receive Date: 20131213
  Receipt Date: 20150805
  Transmission Date: 20151125
  Serious: No
  Sender: FDA-Public Use
  Company Number: US-GILEAD-2010-0026489

PATIENT
  Age: 82 Year
  Sex: Male
  Weight: 77.11 kg

DRUGS (20)
  1. FINASTERIDE. [Concomitant]
     Active Substance: FINASTERIDE
  2. LUNESTA [Concomitant]
     Active Substance: ESZOPICLONE
  3. JANTOVEN [Concomitant]
     Active Substance: WARFARIN SODIUM
  4. ASPIRIN. [Concomitant]
     Active Substance: ASPIRIN
  5. VICODIN [Concomitant]
     Active Substance: ACETAMINOPHEN\HYDROCODONE BITARTRATE
  6. ZOCOR [Concomitant]
     Active Substance: SIMVASTATIN
  7. ERGOCALCIFEROL/NICOTINAMIDE/RETINOL/ASCORBIC ACID/FOLIC ACID/PANTHENOL/RIBOFLAVIN/THIAMINE HYDROCHLO [Concomitant]
  8. REVATIO [Concomitant]
     Active Substance: SILDENAFIL CITRATE
  9. VENTAVIS [Concomitant]
     Active Substance: ILOPROST
  10. PLAVIX [Concomitant]
     Active Substance: CLOPIDOGREL BISULFATE
  11. LISINOPRIL. [Concomitant]
     Active Substance: LISINOPRIL
  12. LETAIRIS [Suspect]
     Active Substance: AMBRISENTAN
     Indication: PULMONARY ARTERIAL HYPERTENSION
     Route: 048
     Dates: start: 20091016
  13. PREDNISONE. [Concomitant]
     Active Substance: PREDNISONE
  14. ADVANCED CALCIUM [Concomitant]
  15. CARDURA [Concomitant]
     Active Substance: DOXAZOSIN MESYLATE
  16. PRILOSEC [Concomitant]
     Active Substance: OMEPRAZOLE MAGNESIUM
  17. TESTOSTERONE PATCH [Concomitant]
     Active Substance: TESTOSTERONE
  18. CITALOPRAM [Concomitant]
     Active Substance: CITALOPRAM HYDROBROMIDE
  19. SPIRIVA [Concomitant]
     Active Substance: TIOTROPIUM BROMIDE MONOHYDRATE
  20. FORTEO [Concomitant]
     Active Substance: TERIPARATIDE

REACTIONS (1)
  - Nasal congestion [Unknown]
